FAERS Safety Report 9694540 (Version 1)
Quarter: 2013Q4

REPORT INFORMATION
  Report Type: Spontaneous
  Country: US (occurrence: US)
  Receive Date: 20131118
  Receipt Date: 20131118
  Transmission Date: 20140711
  Serious: Yes (Hospitalization)
  Sender: FDA-Public Use
  Company Number: US-SANOFI-AVENTIS-2013SA088456

PATIENT
  Age: 53 Year
  Sex: Female

DRUGS (2)
  1. ZALTRAP [Suspect]
     Route: 065
  2. ZALTRAP [Suspect]
     Route: 065
     Dates: start: 20130816, end: 20130816

REACTIONS (6)
  - Subarachnoid haemorrhage [Recovered/Resolved]
  - Headache [Recovered/Resolved]
  - Hypoaesthesia [Recovered/Resolved]
  - Fatigue [Recovered/Resolved]
  - Confusional state [Recovered/Resolved]
  - Hypertension [Recovered/Resolved]
